FAERS Safety Report 8691755 (Version 2)
Quarter: 2012Q4

REPORT INFORMATION
  Report Type: 
  Country: JP (occurrence: JP)
  Receive Date: 20120730
  Receipt Date: 20120926
  Transmission Date: 20130627
  Serious: Yes (Hospitalization, Other)
  Sender: FDA-Public Use
  Company Number: JP-PFIZER INC-2012177756

PATIENT
  Age: 66 Year
  Sex: Female
  Weight: 50 kg

DRUGS (4)
  1. LYRICA [Suspect]
     Indication: HYPOAESTHESIA
     Dosage: 75 mg, 2x/day
     Route: 048
     Dates: start: 20120518
  2. LYRICA [Suspect]
     Indication: PARAESTHESIA
  3. GLICLAZIDE [Concomitant]
     Indication: DIABETES MELLITUS
     Dosage: UNK
  4. METHYCOBAL [Concomitant]
     Dosage: UNK
     Dates: start: 20120518

REACTIONS (3)
  - Syncope [Recovered/Resolved]
  - Contusion [Recovered/Resolved]
  - Fall [Recovered/Resolved]
